FAERS Safety Report 7380287-6 (Version None)
Quarter: 2011Q1

REPORT INFORMATION
  Report Type: 
  Country: None (occurrence: None)
  Receive Date: 20110329
  Receipt Date: 20110322
  Transmission Date: 20110831
  Serious: Yes (Death, Hospitalization)
  Sender: FDA-Public Use
  Company Number: DE-SANOFI-AVENTIS-2011SA017197

PATIENT
  Age: 53 Year

DRUGS (10)
  1. DOCETAXEL [Suspect]
     Indication: LIP AND/OR ORAL CAVITY CANCER
     Route: 041
     Dates: start: 20110310, end: 20110310
  2. CETUXIMAB [Suspect]
     Route: 041
     Dates: start: 20110318, end: 20110318
  3. CETUXIMAB [Suspect]
     Indication: LIP AND/OR ORAL CAVITY CANCER
     Route: 041
     Dates: start: 20110310, end: 20110310
  4. POTASSIUM CHLORIDE [Concomitant]
     Dosage: 1-1-0
     Route: 048
     Dates: end: 20110319
  5. DOCETAXEL [Suspect]
     Route: 041
     Dates: start: 20110318, end: 20110318
  6. CISPLATIN [Suspect]
     Route: 041
     Dates: start: 20110318, end: 20110318
  7. NEBIVOLOL [Concomitant]
     Indication: CHRONIC OBSTRUCTIVE PULMONARY DISEASE
     Dosage: 1/2-0-0
     Route: 048
     Dates: end: 20110319
  8. CISPLATIN [Suspect]
     Indication: LIP AND/OR ORAL CAVITY CANCER
     Route: 041
     Dates: start: 20110310, end: 20110310
  9. OMEPRAZOLE [Concomitant]
     Dosage: 1-0-1
     Route: 048
     Dates: end: 20110319
  10. TORASEMIDE [Concomitant]
     Dosage: 1/2-0-0
     Route: 048
     Dates: end: 20110319

REACTIONS (3)
  - ABDOMINAL PAIN [None]
  - INTESTINAL ISCHAEMIA [None]
  - ILEUS [None]
